FAERS Safety Report 18377113 (Version 1)
Quarter: 2020Q4

REPORT INFORMATION
  Report Type: Spontaneous
  Country: US (occurrence: US)
  Receive Date: 20201013
  Receipt Date: 20201013
  Transmission Date: 20210114
  Serious: No
  Sender: FDA-Public Use
  Company Number: US-PFIZER INC-2020393654

PATIENT
  Age: 70 Year
  Sex: Female
  Weight: 79.38 kg

DRUGS (1)
  1. PREMARIN [Suspect]
     Active Substance: ESTROGENS, CONJUGATED
     Indication: HOT FLUSH
     Dosage: 125 MG, 1X/DAY(125MG CAPSULE ONCE BY MOUTH IN THE MORNING)
     Route: 048

REACTIONS (4)
  - Intentional product misuse [Unknown]
  - Nasopharyngitis [Unknown]
  - Back pain [Unknown]
  - Herpes zoster [Unknown]
